FAERS Safety Report 12294339 (Version 1)
Quarter: 2016Q2

REPORT INFORMATION
  Report Type: Spontaneous
  Country: GB (occurrence: GB)
  Receive Date: 20160422
  Receipt Date: 20160422
  Transmission Date: 20160815
  Serious: Yes (Other)
  Sender: FDA-Public Use
  Company Number: GB-ACCORD-039773

PATIENT
  Age: 67 Year
  Sex: Male
  Weight: 100 kg

DRUGS (22)
  1. LEVOTHYROXINE. [Concomitant]
     Active Substance: LEVOTHYROXINE
     Dates: start: 20160220, end: 20160331
  2. VITAMINS NOS [Concomitant]
     Active Substance: VITAMINS
     Dates: start: 20160220, end: 20160331
  3. HUMALOG [Concomitant]
     Active Substance: INSULIN LISPRO
     Dosage: AS DIRECTED DEPENDING ON BLOOD SUGARS.
     Dates: start: 20160329
  4. HYPROMELLOSE/HYPROMELLOSE PHTHALATE [Concomitant]
     Dosage: INSTIL ONE DROP IN TO BOTH EYES AS NEEDED.
     Dates: start: 20160223, end: 20160322
  5. PARACETAMOL [Concomitant]
     Active Substance: ACETAMINOPHEN
     Dosage: 2 TABLET, 4 TIMES PER 24 HOURS
     Dates: start: 20160330
  6. AMLODIPINE [Concomitant]
     Active Substance: AMLODIPINE BESYLATE
     Dosage: EVERY DAY
     Dates: start: 20160314, end: 20160329
  7. CARMELLOSE [Concomitant]
     Indication: DRY EYE
     Dosage: ONE DROP IN EACH EYE AS NEEDED.
     Route: 050
     Dates: start: 20160223, end: 20160308
  8. LACTULOSE. [Concomitant]
     Active Substance: LACTULOSE
     Dates: start: 20160324, end: 20160326
  9. METFORMIN [Concomitant]
     Active Substance: METFORMIN HYDROCHLORIDE
     Dates: start: 20160329, end: 20160329
  10. PREDNISOLONE. [Concomitant]
     Active Substance: PREDNISOLONE
     Dates: start: 20160220, end: 20160331
  11. TACROLIMUS. [Concomitant]
     Active Substance: TACROLIMUS
     Dates: start: 20160220
  12. TAMSULOSIN [Concomitant]
     Active Substance: TAMSULOSIN
     Dates: start: 20160220, end: 20160331
  13. ATORVASTATIN [Concomitant]
     Active Substance: ATORVASTATIN
     Dosage: IN THE AFTERNOON.
     Dates: start: 20160220, end: 20160331
  14. NICORANDIL [Concomitant]
     Active Substance: NICORANDIL
     Dates: start: 20160224
  15. LISINOPRIL. [Suspect]
     Active Substance: LISINOPRIL
     Indication: PRODUCT USED FOR UNKNOWN INDICATION
     Dates: start: 20160331
  16. AZATHIOPRINE. [Concomitant]
     Active Substance: AZATHIOPRINE
     Dosage: IN THE MORNING.
     Dates: start: 20160329, end: 20160329
  17. DOXAZOSIN [Concomitant]
     Active Substance: DOXAZOSIN\DOXAZOSIN MESYLATE
     Dates: start: 20160220, end: 20160331
  18. AMOXICILLIN. [Concomitant]
     Active Substance: AMOXICILLIN
     Dates: start: 20160220, end: 20160227
  19. ACETYLSALICYLIC ACID [Concomitant]
     Active Substance: ASPIRIN
     Dosage: IN THE MORNING.
     Dates: start: 20160220, end: 20160331
  20. ATENOLOL/ATENOLOL HYDROCHLORIDE [Concomitant]
     Dosage: IN THE MORNING.
     Dates: start: 20160220, end: 20160331
  21. FLUCLOXACILLIN [Concomitant]
     Active Substance: FLUCLOXACILLIN
     Dates: start: 20160220, end: 20160225
  22. LANSOPRAZOLE. [Concomitant]
     Active Substance: LANSOPRAZOLE
     Dates: start: 20160329, end: 20160329

REACTIONS (1)
  - Palpitations [Not Recovered/Not Resolved]

NARRATIVE: CASE EVENT DATE: 20160331
